FAERS Safety Report 7413440-3 (Version None)
Quarter: 2011Q2

REPORT INFORMATION
  Report Type: 
  Country: None (occurrence: None)
  Receive Date: 20110413
  Receipt Date: 20110408
  Transmission Date: 20111010
  Serious: Yes (Other)
  Sender: FDA-Public Use
  Company Number: PHHY2011JP15235

PATIENT
  Age: 30 Year
  Sex: Male

DRUGS (1)
  1. ZADITEN [Suspect]
     Indication: HYPERSENSITIVITY
     Route: 048
     Dates: start: 20110220, end: 20110221

REACTIONS (3)
  - TREMOR [None]
  - CONVULSION [None]
  - NAUSEA [None]
